FAERS Safety Report 8485315-2 (Version None)
Quarter: 2012Q3

REPORT INFORMATION
  Report Type: 
  Country: None (occurrence: None)
  Receive Date: 20120703
  Receipt Date: 20120629
  Transmission Date: 20120928
  Serious: Yes (Hospitalization)
  Sender: FDA-Public Use
  Company Number: BR-ROCHE-1070288

PATIENT
  Sex: Female
  Weight: 60 kg

DRUGS (4)
  1. CLONAZEPAM [Suspect]
     Dosage: 25 MG/ML
     Route: 048
  2. CLONAZEPAM [Suspect]
     Indication: CONVULSION
     Dosage: 25 MG/ML
     Route: 048
     Dates: start: 20120424
  3. LAMOTRIGINE [Concomitant]
     Indication: CONVULSION
     Route: 048
  4. LAMOTRIGINE [Concomitant]
     Indication: EPILEPSY

REACTIONS (2)
  - CONVULSION [None]
  - HEADACHE [None]
